FAERS Safety Report 6935703-8 (Version None)
Quarter: 2010Q3

REPORT INFORMATION
  Report Type: 
  Country: None (occurrence: None)
  Receive Date: 20100823
  Receipt Date: 20100816
  Transmission Date: 20110219
  Serious: Yes (Hospitalization, Other)
  Sender: FDA-Public Use
  Company Number: HQWYE464322MAR06

PATIENT
  Sex: Female
  Weight: 117.59 kg

DRUGS (15)
  1. PREMPRO [Suspect]
     Indication: MENOPAUSE
     Dosage: 0.625/2.5MG ONCE DAILY
     Route: 048
     Dates: start: 19960101, end: 20030101
  2. LIPITOR [Concomitant]
     Indication: BLOOD CHOLESTEROL INCREASED
     Route: 048
     Dates: start: 20021001
  3. INSULIN [Concomitant]
     Indication: DIABETES MELLITUS
     Dosage: VARYING DOSE, GENERALLY INCREASING EACH TIME
     Route: 058
  4. INSULIN [Concomitant]
     Dosage: 70/30 55 UNITS TWICE DAILY
     Route: 058
  5. PROZAC [Concomitant]
     Indication: DEPRESSION
     Route: 048
     Dates: start: 20020301
  6. PROZAC [Concomitant]
     Route: 048
     Dates: start: 20040101
  7. PROVERA [Suspect]
  8. VERAPAMIL - SLOW RELEASE [Concomitant]
     Indication: BLOOD PRESSURE
     Route: 048
     Dates: start: 19960101
  9. VERAPAMIL - SLOW RELEASE [Concomitant]
     Route: 048
  10. COZAAR [Concomitant]
     Indication: DIABETES MELLITUS
     Route: 065
  11. GLUCOPHAGE [Concomitant]
     Indication: DIABETES MELLITUS
     Route: 065
  12. HYDROCHLOROTHIAZIDE [Concomitant]
     Indication: HYPERTENSION
     Route: 065
  13. PREMARIN [Suspect]
  14. MULTIVITAMINS AND IRON [Concomitant]
     Indication: MEDICAL DIET
     Route: 048
  15. ASPIRIN [Concomitant]
     Indication: HYPERTENSION
     Route: 065

REACTIONS (4)
  - BREAST CANCER METASTATIC [None]
  - OESTROGEN RECEPTOR ASSAY POSITIVE [None]
  - POSTOPERATIVE WOUND INFECTION [None]
  - PROGESTERONE RECEPTOR ASSAY POSITIVE [None]
